FAERS Safety Report 5106933-5 (Version None)
Quarter: 2006Q3

REPORT INFORMATION
  Report Type: 
  Country: None (occurrence: None)
  Receive Date: 20060918
  Receipt Date: 20060809
  Transmission Date: 20061208
  Serious: Yes (Hospitalization)
  Sender: FDA-Public Use
  Company Number: FR-BOEHRINGER INGELHEIM GMBH, GERMANY-2006-FF-00701FF

PATIENT
  Age: 83 Year
  Sex: Male

DRUGS (7)
  1. MECIR LP 0.4 [Suspect]
     Route: 048
     Dates: start: 20060629, end: 20060630
  2. MICARDIS HCT [Suspect]
     Indication: ESSENTIAL HYPERTENSION
     Route: 048
     Dates: end: 20060630
  3. VASTAREL [Concomitant]
     Route: 048
  4. TAHOR [Concomitant]
     Route: 048
  5. STILNOX [Concomitant]
     Route: 048
     Dates: start: 20060628, end: 20060630
  6. PREVISCAN [Concomitant]
     Indication: ATRIAL FIBRILLATION
     Route: 048
     Dates: start: 20060615
  7. PREVISCAN [Concomitant]
     Indication: ATRIAL FLUTTER

REACTIONS (12)
  - ARRHYTHMIA [None]
  - ATRIAL FIBRILLATION [None]
  - BALANCE DISORDER [None]
  - BLOOD PRESSURE SYSTOLIC INCREASED [None]
  - BLOOD SODIUM DECREASED [None]
  - BRAIN SCAN ABNORMAL [None]
  - CONFUSIONAL STATE [None]
  - DRUG INTERACTION [None]
  - FALL [None]
  - LOSS OF CONSCIOUSNESS [None]
  - MALAISE [None]
  - ORTHOSTATIC HYPOTENSION [None]
